FAERS Safety Report 16846518 (Version 1)
Quarter: 2019Q3

REPORT INFORMATION
  Report Type: Report from Study
  Country: US (occurrence: US)
  Receive Date: 20190924
  Receipt Date: 20190924
  Transmission Date: 20191005
  Serious: No
  Sender: FDA-Public Use
  Company Number: US-INCYTE CORPORATION-2019IN008386

PATIENT

DRUGS (1)
  1. JAKAFI [Suspect]
     Active Substance: RUXOLITINIB
     Indication: MYELOFIBROSIS
     Route: 065

REACTIONS (8)
  - Dyspnoea exertional [Unknown]
  - Fatigue [Unknown]
  - Pain [Unknown]
  - Haemoglobin decreased [Unknown]
  - Decreased activity [Unknown]
  - Swelling [Unknown]
  - Weight increased [Unknown]
  - Dizziness [Unknown]
